FAERS Safety Report 6131728-3 (Version None)
Quarter: 2009Q1

REPORT INFORMATION
  Report Type: 
  Country: None (occurrence: None)
  Receive Date: 20090325
  Receipt Date: 20090317
  Transmission Date: 20090719
  Serious: Yes (Other)
  Sender: FDA-Public Use
  Company Number: PHHY2009JP04057

PATIENT
  Age: 58 Year
  Sex: Female

DRUGS (2)
  1. DIOVAN [Suspect]
     Indication: HYPERTENSION
     Dosage: 80 MG, QD
     Route: 048
     Dates: start: 20050101
  2. ADALAT CC [Suspect]
     Dosage: 40 MG DAILY
     Route: 048
     Dates: start: 20090120, end: 20090306

REACTIONS (2)
  - ARTHRALGIA [None]
  - OSTEOARTHRITIS [None]
